FAERS Safety Report 4794972-3 (Version None)
Quarter: 2005Q3

REPORT INFORMATION
  Report Type: 
  Country: None (occurrence: None)
  Receive Date: 20050919
  Receipt Date: 20050527
  Transmission Date: 20060218
  Serious: No
  Sender: FDA-Public Use
  Company Number: US-JNJFOC-20050600252

PATIENT
  Age: 23 Year
  Sex: Female
  Weight: 68.0396 kg

DRUGS (7)
  1. ORTHO TRI-CYCLEN LO [Suspect]
     Indication: DRUG USE FOR UNKNOWN INDICATION
     Dosage: 1 DOSE(S), 1 IN 1 DAY, ORAL
     Route: 048
  2. EFFEXOR XR [Concomitant]
  3. VALIUM [Concomitant]
  4. TRAZODONE HCL [Concomitant]
  5. ZOCOR [Concomitant]
  6. MULTIVITAMIN [Concomitant]
  7. ULTRAM [Concomitant]

REACTIONS (2)
  - DYSMENORRHOEA [None]
  - METRORRHAGIA [None]
